FAERS Safety Report 16414243 (Version 1)
Quarter: 2019Q2

REPORT INFORMATION
  Report Type: Spontaneous
  Country: US (occurrence: US)
  Receive Date: 20190611
  Receipt Date: 20190611
  Transmission Date: 20190711
  Serious: No
  Sender: FDA-Public Use
  Company Number: US-TEVA-2019-US-1055701

PATIENT
  Age: 24 Year
  Sex: Male

DRUGS (24)
  1. PHENYTOIN. [Interacting]
     Active Substance: PHENYTOIN
     Indication: FRONTAL LOBE EPILEPSY
     Dosage: 200 MILLIGRAM DAILY; ON DAY 160 OF TDM
     Route: 065
  2. QUETIAPINE. [Concomitant]
     Active Substance: QUETIAPINE
     Indication: TEMPORAL LOBE EPILEPSY
  3. LAMOTRIGINE. [Suspect]
     Active Substance: LAMOTRIGINE
     Indication: SEIZURE
     Dosage: 300 MILLIGRAM DAILY; ON DAY 1 OF TDM
     Route: 065
  4. LACOSAMIDE. [Concomitant]
     Active Substance: LACOSAMIDE
     Indication: SEIZURE
     Dosage: 400 MILLIGRAM DAILY; FROM DAY 12 OF TDM
     Route: 065
  5. OLANZAPINE. [Concomitant]
     Active Substance: OLANZAPINE
     Indication: PSYCHOTIC DISORDER
     Dosage: 20 MILLIGRAM DAILY; ON DAY 12 OF TDM
     Route: 065
  6. LURASIDONE [Concomitant]
     Active Substance: LURASIDONE
     Indication: PSYCHOTIC DISORDER
     Dosage: 120 MILLIGRAM DAILY; ON DAY 39 OF TDM
     Route: 065
  7. LAMOTRIGINE. [Interacting]
     Active Substance: LAMOTRIGINE
     Indication: TEMPORAL LOBE EPILEPSY
     Dosage: 400 MILLIGRAM DAILY; ON DAY 104 OF TDM
     Route: 065
  8. PHENOBARBITAL. [Concomitant]
     Active Substance: PHENOBARBITAL
     Indication: FRONTAL LOBE EPILEPSY
     Dosage: 194 MILLIGRAM DAILY; ON DAY 160 OF TDM
     Route: 065
  9. LACOSAMIDE. [Concomitant]
     Active Substance: LACOSAMIDE
     Indication: FRONTAL LOBE EPILEPSY
     Dosage: 700 MILLIGRAM DAILY; ON DAY 160 OF TDM
     Route: 065
  10. LAMOTRIGINE. [Interacting]
     Active Substance: LAMOTRIGINE
     Indication: FRONTAL LOBE EPILEPSY
     Dosage: 350 MILLIGRAM DAILY; ON DAY 39 OF TDM
     Route: 065
  11. LAMOTRIGINE. [Interacting]
     Active Substance: LAMOTRIGINE
     Dosage: 600 MILLIGRAM DAILY; ON DAY 130 OF TDM
     Route: 065
  12. PHENYTOIN. [Interacting]
     Active Substance: PHENYTOIN
     Indication: TEMPORAL LOBE EPILEPSY
     Dosage: 300 MILLIGRAM DAILY; ON DAY 169 OF TDM
     Route: 065
  13. PHENOBARBITAL. [Concomitant]
     Active Substance: PHENOBARBITAL
     Indication: SEIZURE
     Dosage: STARTED ON DAY 141 OF TDM; INITIAL DOSAGE NOT STATED
     Route: 065
  14. QUETIAPINE. [Concomitant]
     Active Substance: QUETIAPINE
     Indication: FRONTAL LOBE EPILEPSY
  15. LEVOTHYROXINE. [Concomitant]
     Active Substance: LEVOTHYROXINE
     Dosage: 75 MICROGRAM DAILY; FROM DAY 12 OF TDM
     Route: 065
  16. LAMOTRIGINE. [Interacting]
     Active Substance: LAMOTRIGINE
     Dosage: 1000 MILLIGRAM DAILY; FROM DAY 160 TO 192 OF TDM.
     Route: 065
  17. TOPIRAMATE. [Concomitant]
     Active Substance: TOPIRAMATE
     Indication: SEIZURE
     Dosage: 400 MILLIGRAM DAILY; FROM DAY 12 OF TDM
     Route: 065
  18. TOPIRAMATE. [Concomitant]
     Active Substance: TOPIRAMATE
     Indication: TEMPORAL LOBE EPILEPSY
  19. QUETIAPINE. [Concomitant]
     Active Substance: QUETIAPINE
     Indication: SEIZURE
     Dosage: 800 MILLIGRAM DAILY; FROM DAY 104 TO 130 OF TDM
     Route: 065
  20. LORAZEPAM. [Concomitant]
     Active Substance: LORAZEPAM
     Indication: PSYCHOTIC DISORDER
     Dosage: 4 MILLIGRAM DAILY; FROM DAY 130 OF TDM
     Route: 042
  21. PHENYTOIN. [Interacting]
     Active Substance: PHENYTOIN
     Indication: SEIZURE
     Dosage: 450 MILLIGRAM DAILY; ON DAY 1 OF TDM UP TO DAY 130 OF TDM
     Route: 065
  22. PHENOBARBITAL. [Concomitant]
     Active Substance: PHENOBARBITAL
     Indication: TEMPORAL LOBE EPILEPSY
     Dosage: 161 MILLIGRAM DAILY; ON DAY 169 OF TDM
     Route: 065
  23. TOPIRAMATE. [Concomitant]
     Active Substance: TOPIRAMATE
     Indication: FRONTAL LOBE EPILEPSY
  24. LACOSAMIDE. [Concomitant]
     Active Substance: LACOSAMIDE
     Indication: TEMPORAL LOBE EPILEPSY

REACTIONS (2)
  - Drug level below therapeutic [Recovered/Resolved]
  - Drug interaction [Unknown]
